FAERS Safety Report 5217297-0 (Version None)
Quarter: 2007Q1

REPORT INFORMATION
  Report Type: 
  Country: None (occurrence: None)
  Receive Date: 20070124
  Receipt Date: 20060621
  Transmission Date: 20070707
  Serious: No
  Sender: FDA-Public Use
  Company Number: US-GLAXOSMITHKLINE-A0586842A

PATIENT
  Age: 55 Year
  Sex: Female

DRUGS (7)
  1. PAXIL CR [Suspect]
     Indication: DRUG USE FOR UNKNOWN INDICATION
     Dosage: 75MG PER DAY
     Route: 048
  2. COMBIVENT [Concomitant]
  3. ALPRAZOLAM [Concomitant]
  4. HYDROCHLOROTHIAZIDE [Concomitant]
  5. LIPITOR [Concomitant]
  6. STEROID [Concomitant]
  7. ATROVENT [Concomitant]

REACTIONS (1)
  - DRUG SCREEN POSITIVE [None]
